FAERS Safety Report 10164968 (Version 1)
Quarter: 2014Q2

REPORT INFORMATION
  Report Type: Spontaneous
  Country: US (occurrence: US)
  Receive Date: 20140510
  Receipt Date: 20140510
  Transmission Date: 20141212
  Serious: No
  Sender: FDA-Public Use
  Company Number: US-BRISTOL-MYERS SQUIBB COMPANY-19639806

PATIENT
  Sex: Female
  Weight: 104.31 kg

DRUGS (3)
  1. BYDUREON [Suspect]
     Indication: TYPE 2 DIABETES MELLITUS
     Dosage: RECENT INJ:20OCT13
     Dates: start: 20131009
  2. METFORMIN HCL [Suspect]
  3. LEVEMIR [Concomitant]
     Dosage: 1DF:56 UNITS

REACTIONS (3)
  - Blood glucose increased [Unknown]
  - Circumstance or information capable of leading to medication error [Unknown]
  - Inappropriate schedule of drug administration [Unknown]
